FAERS Safety Report 6749770-8 (Version None)
Quarter: 2010Q2

REPORT INFORMATION
  Report Type: 
  Country: None (occurrence: None)
  Receive Date: 20100601
  Receipt Date: 20100526
  Transmission Date: 20101027
  Serious: Yes (Death, Life-Threatening, Other)
  Sender: FDA-Public Use
  Company Number: PHHY2010JP34526

PATIENT
  Age: 37 Year
  Sex: Male

DRUGS (15)
  1. CYCLOSPORINE [Suspect]
     Indication: PSORIASIS
     Dosage: 400 MG DAILY
     Route: 048
  2. CYCLOSPORINE [Suspect]
     Dosage: 200 MG DAILY
     Route: 048
  3. PREDNISOLONE [Concomitant]
     Dosage: 60 MG
     Route: 048
  4. PREDNISOLONE [Concomitant]
     Dosage: 40 MG
     Route: 048
  5. REMICADE [Concomitant]
     Route: 042
  6. GANCICLOVIR [Concomitant]
  7. METRONIDAZOLE [Concomitant]
  8. RIFAMPICIN [Concomitant]
     Route: 048
  9. TARGOCID [Concomitant]
  10. TAZOBACTAM [Concomitant]
  11. IMIPENEM [Concomitant]
  12. MICAFUNGIN SODIUM [Concomitant]
  13. FLUCONAZOLE [Concomitant]
  14. MEROPEN [Concomitant]
  15. CLINDAMYCIN PHOSPHATE [Concomitant]

REACTIONS (9)
  - CEREBRAL INFARCTION [None]
  - CYTOMEGALOVIRUS INFECTION [None]
  - DEVICE RELATED SEPSIS [None]
  - DISSEMINATED INTRAVASCULAR COAGULATION [None]
  - PANCYTOPENIA [None]
  - PSEUDOMEMBRANOUS COLITIS [None]
  - RENAL FAILURE CHRONIC [None]
  - SMALL INTESTINAL HAEMORRHAGE [None]
  - SYSTEMIC MYCOSIS [None]
